FAERS Safety Report 9477514 (Version 2)
Quarter: 2013Q4

REPORT INFORMATION
  Report Type: Report from Study
  Country: GB (occurrence: GB)
  Receive Date: 20130827
  Receipt Date: 20131203
  Transmission Date: 20140711
  Serious: Yes (Hospitalization)
  Sender: FDA-Public Use
  Company Number: GB-ACCORD-019001

PATIENT
  Age: 44 Year
  Sex: Female

DRUGS (16)
  1. RANITIDINE [Concomitant]
     Dates: start: 20130718, end: 20130718
  2. BRUFEN [Concomitant]
     Dosage: 1 IN 1 AS REQUIRED
     Dates: start: 20121122
  3. GASTROCOTE [Concomitant]
     Dosage: 1 IN 1 AS REQUIRED
     Dates: start: 20130417
  4. DEXAMETASON [Concomitant]
     Dates: start: 20130710, end: 20130712
  5. IBANDRONIC ACID [Concomitant]
     Dates: start: 20120614
  6. BEMIPARIN SODIUM [Concomitant]
     Dates: start: 20130715, end: 20130718
  7. PERTUZUMAB [Concomitant]
     Indication: HER-2 POSITIVE BREAST CANCER
     Route: 042
     Dates: start: 20130621
  8. PARACETAMOL [Concomitant]
     Dates: start: 20130717
  9. DOCETAXEL [Suspect]
     Indication: HER-2 POSITIVE BREAST CANCER
     Route: 042
     Dates: start: 20121009
  10. TRASTUZUMAB [Concomitant]
     Indication: HER-2 POSITIVE BREAST CANCER
     Route: 042
     Dates: start: 20130621
  11. DEXCHLORPHENIRAMINE [Concomitant]
     Dates: start: 20130718, end: 20130718
  12. LANSOPRAZOLE [Concomitant]
     Dates: start: 20130530
  13. FUROSEMIDE [Concomitant]
     Dates: start: 20130328
  14. METHYLPREDNISOLONE [Concomitant]
     Dates: start: 20130713, end: 20130715
  15. PACLITAXEL [Suspect]
     Indication: HER-2 POSITIVE BREAST CANCER
     Route: 065
     Dates: start: 20130621
  16. LOPERAMIDE [Concomitant]
     Dates: start: 20130715

REACTIONS (2)
  - Neutropenic sepsis [Recovered/Resolved]
  - Dyspnoea [Recovered/Resolved]
